FAERS Safety Report 6628682-4 (Version None)
Quarter: 2010Q1

REPORT INFORMATION
  Report Type: 
  Country: None (occurrence: None)
  Receive Date: 20100311
  Receipt Date: 20100301
  Transmission Date: 20100710
  Serious: Yes (Hospitalization)
  Sender: FDA-Public Use
  Company Number: HK-BRISTOL-MYERS SQUIBB COMPANY-14995096

PATIENT
  Age: 22 Year
  Sex: Male

DRUGS (3)
  1. BLEOMYCIN SULFATE [Suspect]
     Indication: MEDIASTINUM NEOPLASM
     Dosage: 6 CYCLES OF BLEOMYCIN WITH A CULMINATIVE DOSE OF 300 MG
     Route: 042
  2. CISPLATIN [Suspect]
     Indication: MEDIASTINUM NEOPLASM
     Route: 042
  3. ETOPOSIDE [Suspect]
     Indication: MEDIASTINUM NEOPLASM
     Route: 042

REACTIONS (2)
  - ERYTHEMA [None]
  - FEBRILE NEUTROPENIA [None]
